FAERS Safety Report 8899198 (Version 1)
Quarter: 2012Q4

REPORT INFORMATION
  Report Type: 
  Country: US (occurrence: US)
  Receive Date: 20121109
  Receipt Date: 20121109
  Transmission Date: 20130627
  Serious: Yes (Other)
  Sender: FDA-Public Use
  Company Number: US-TEVA-369227USA

PATIENT
  Age: 67 Year
  Sex: Female
  Weight: 63.49 kg

DRUGS (5)
  1. FEXOFENADINE [Suspect]
     Indication: COUGH
     Dosage: 180 Milligram Daily;
     Route: 048
     Dates: start: 20121028, end: 20121031
  2. PROZAC [Concomitant]
     Dates: start: 1992
  3. ZOLEDRONIC ACID [Concomitant]
     Dates: start: 201210
  4. VITAMINS [Concomitant]
  5. PRAVASTATIN [Concomitant]

REACTIONS (8)
  - Dizziness [Recovered/Resolved]
  - Disorientation [Recovered/Resolved]
  - Gait disturbance [Recovered/Resolved]
  - Vision blurred [Recovered/Resolved]
  - Dehydration [Recovered/Resolved]
  - Feeling hot [Recovered/Resolved]
  - Asthenia [Not Recovered/Not Resolved]
  - Drug administered to patient of inappropriate age [Unknown]
